FAERS Safety Report 6540283-5 (Version None)
Quarter: 2010Q1

REPORT INFORMATION
  Report Type: 
  Country: None (occurrence: None)
  Receive Date: 20100115
  Receipt Date: 20090406
  Transmission Date: 20100710
  Serious: No
  Sender: FDA-Public Use
  Company Number: US-ABBOTT-09P-163-0567067-00

PATIENT
  Sex: Female
  Weight: 86.26 kg

DRUGS (11)
  1. ADVICOR [Suspect]
     Indication: BLOOD CHOLESTEROL INCREASED
     Dates: start: 20090402
  2. GLIPIZIDE [Concomitant]
     Indication: DRUG USE FOR UNKNOWN INDICATION
  3. METFORMIN [Concomitant]
     Indication: DRUG USE FOR UNKNOWN INDICATION
     Dosage: 1500
  4. BENICAR [Concomitant]
     Indication: DRUG USE FOR UNKNOWN INDICATION
  5. HYDROCHLOROTHIAZIDE [Concomitant]
     Indication: DRUG USE FOR UNKNOWN INDICATION
  6. ALEVE (CAPLET) [Concomitant]
     Indication: DRUG USE FOR UNKNOWN INDICATION
  7. PROTONIX [Concomitant]
     Indication: DRUG USE FOR UNKNOWN INDICATION
  8. CALCIUM [Concomitant]
     Indication: DRUG USE FOR UNKNOWN INDICATION
  9. M.V.I. [Concomitant]
     Indication: DRUG USE FOR UNKNOWN INDICATION
  10. CELEBREX [Concomitant]
     Indication: DRUG USE FOR UNKNOWN INDICATION
  11. BABY ASPIRIN [Concomitant]
     Indication: DRUG USE FOR UNKNOWN INDICATION

REACTIONS (1)
  - FLUSHING [None]
